FAERS Safety Report 21496156 (Version 1)
Quarter: 2022Q4

REPORT INFORMATION
  Report Type: Report from Study
  Country: ES (occurrence: ES)
  Receive Date: 20221022
  Receipt Date: 20221022
  Transmission Date: 20230112
  Serious: Yes (Life-Threatening, Hospitalization)
  Sender: FDA-Public Use
  Company Number: None

PATIENT
  Age: 53 Year
  Sex: Female

DRUGS (5)
  1. CARBOPLATIN [Interacting]
     Active Substance: CARBOPLATIN
     Indication: Product used for unknown indication
     Dosage: 10 MG/ML EFG, 1 VIAL OF 60 ML, CYCLES EVERY 3 WEEKS
     Dates: start: 20220526
  2. PACLITAXEL [Interacting]
     Active Substance: PACLITAXEL
     Indication: Product used for unknown indication
     Dosage: 6 MG/ ML  EFG, 1 VIAL OF 25 ML
     Dates: start: 20220526
  3. ESCITALOPRAM [Concomitant]
     Active Substance: ESCITALOPRAM OXALATE
     Dosage: 20 MG, 1 COMP DAY, EFG, 28 TABLETS
  4. ALPRAZOLAM [Concomitant]
     Active Substance: ALPRAZOLAM
     Dosage: 1 MG, 30 TABLETS, EVERY 8 HOURS
  5. MORPHINE SULFATE [Concomitant]
     Active Substance: MORPHINE SULFATE
     Dosage: 5 MG, 60 TABLETS, EVERY 12 HOURS

REACTIONS (4)
  - Pancytopenia [Recovered/Resolved]
  - Neutropenia [Recovered/Resolved]
  - Febrile neutropenia [Recovered/Resolved]
  - Drug interaction [Unknown]

NARRATIVE: CASE EVENT DATE: 20220623
